FAERS Safety Report 13412427 (Version 3)
Quarter: 2023Q4

REPORT INFORMATION
  Report Type: Spontaneous
  Country: US (occurrence: US)
  Receive Date: 20170406
  Receipt Date: 20231124
  Transmission Date: 20240110
  Serious: No
  Sender: FDA-Public Use
  Company Number: US-JNJFOC-20170310762

PATIENT
  Sex: Male

DRUGS (7)
  1. RISPERDAL [Suspect]
     Active Substance: RISPERIDONE
     Indication: Psychotic disorder
     Dosage: VARYING DOSES OF 1 MG, 2 MG, 3 MG ?AND VARYING FREQUENCIES.
     Route: 048
     Dates: start: 20021114, end: 20090104
  2. RISPERDAL [Suspect]
     Active Substance: RISPERIDONE
     Indication: Sleep disorder
     Route: 048
     Dates: end: 20130306
  3. RISPERDAL [Suspect]
     Active Substance: RISPERIDONE
     Indication: Affective disorder
  4. RISPERIDONE [Suspect]
     Active Substance: RISPERIDONE
     Indication: Psychotic disorder
     Route: 048
     Dates: start: 20030528
  5. RISPERIDONE [Suspect]
     Active Substance: RISPERIDONE
     Indication: Sleep disorder
     Route: 048
     Dates: start: 20031023, end: 20031204
  6. RISPERIDONE [Suspect]
     Active Substance: RISPERIDONE
     Indication: Affective disorder
     Route: 048
     Dates: start: 20071106
  7. RISPERIDONE [Suspect]
     Active Substance: RISPERIDONE
     Dosage: VARYING DOSES OF 2 MG, 3 MG AND VARYING FREQUENCIES.
     Route: 048
     Dates: start: 20090204, end: 20130306

REACTIONS (2)
  - Gynaecomastia [Unknown]
  - Emotional disorder [Unknown]
